FAERS Safety Report 16667636 (Version 1)
Quarter: 2019Q3

REPORT INFORMATION
  Report Type: Spontaneous
  Country: IT (occurrence: IT)
  Receive Date: 20190805
  Receipt Date: 20190805
  Transmission Date: 20191004
  Serious: Yes (Other)
  Sender: FDA-Public Use
  Company Number: IT-PFIZER INC-2019327783

PATIENT
  Age: 63 Year
  Sex: Male
  Weight: 80 kg

DRUGS (1)
  1. FELDENE [Suspect]
     Active Substance: PIROXICAM
     Indication: ANTIINFLAMMATORY THERAPY
     Dosage: 20 MG, 1X/DAY
     Route: 048
     Dates: start: 20190507, end: 20190619

REACTIONS (2)
  - Fluid retention [Recovered/Resolved]
  - Cardiovascular disorder [Recovered/Resolved]

NARRATIVE: CASE EVENT DATE: 20190607
